FAERS Safety Report 9379353 (Version 3)
Quarter: 2013Q4

REPORT INFORMATION
  Report Type: Spontaneous
  Country: US (occurrence: US)
  Receive Date: 20130702
  Receipt Date: 20131016
  Transmission Date: 20140711
  Serious: Yes (Death, Hospitalization)
  Sender: FDA-Public Use
  Company Number: FR-ASTELLAS-2013US006885

PATIENT
  Age: 12 Year
  Sex: Female

DRUGS (3)
  1. AMBISOME [Suspect]
     Indication: CANDIDA INFECTION
     Dosage: UNK
     Route: 065
  2. VFEND [Suspect]
     Indication: CANDIDA INFECTION
     Dosage: UNK
     Route: 065
  3. ANCOTIL [Suspect]
     Indication: CANDIDA INFECTION
     Dosage: UNK
     Route: 065

REACTIONS (6)
  - Multi-organ failure [Fatal]
  - Device related infection [Unknown]
  - Cystitis haemorrhagic [Unknown]
  - Systemic candida [Unknown]
  - Candida infection [Unknown]
  - Drug ineffective [Unknown]
